FAERS Safety Report 12369256 (Version 7)
Quarter: 2016Q2

REPORT INFORMATION
  Report Type: Report from Study
  Country: DE (occurrence: DE)
  Receive Date: 20160513
  Receipt Date: 20160602
  Transmission Date: 20160815
  Serious: Yes (Death)
  Sender: FDA-Public Use
  Company Number: DE-B.I. PHARMACEUTICALS,INC./RIDGEFIELD-2016-BI-30276II

PATIENT
  Age: 75 Year
  Sex: Male
  Weight: 73 kg

DRUGS (5)
  1. GEMCITABINE [Suspect]
     Active Substance: GEMCITABINE\GEMCITABINE HYDROCHLORIDE
     Indication: PANCREATIC CARCINOMA METASTATIC
     Dosage: 1870 MG
     Route: 042
     Dates: start: 20160413, end: 20160427
  2. BIBW 2992 [Suspect]
     Active Substance: AFATINIB
     Indication: PANCREATIC CARCINOMA METASTATIC
     Dosage: 40 MG
     Route: 048
     Dates: start: 20160413, end: 20160506
  3. PANTOZOL [Concomitant]
     Active Substance: PANTOPRAZOLE SODIUM
     Indication: PROPHYLAXIS AGAINST GASTROINTESTINAL ULCER
     Dosage: 80 MG
     Route: 065
     Dates: start: 20160329, end: 20160509
  4. SIMVAHEXAL [Concomitant]
     Active Substance: SIMVASTATIN
     Indication: HYPERCHOLESTEROLAEMIA
     Dosage: 20 MG
     Route: 065
     Dates: end: 20160509
  5. MOVICOL [Concomitant]
     Active Substance: POLYETHYLENE GLYCOL 3350\POTASSIUM CHLORIDE\SODIUM BICARBONATE\SODIUM CHLORIDE
     Indication: CONSTIPATION
     Dosage: DOSE PER APPLICATION AND DAILY DOSE -ON DEMAND
     Route: 065
     Dates: start: 20160329, end: 20160509

REACTIONS (5)
  - Diarrhoea [Unknown]
  - Anaemia [Unknown]
  - Fatigue [Unknown]
  - Cardiac death [Fatal]
  - Anaemia [Unknown]

NARRATIVE: CASE EVENT DATE: 20160420
